FAERS Safety Report 8495077-0 (Version None)
Quarter: 2012Q3

REPORT INFORMATION
  Report Type: 
  Country: None (occurrence: None)
  Receive Date: 20120709
  Receipt Date: 20120626
  Transmission Date: 20120928
  Serious: Yes (Death, Hospitalization)
  Sender: FDA-Public Use
  Company Number: TR-ELI_LILLY_AND_COMPANY-TR201205004612

PATIENT
  Sex: Male
  Weight: 63 kg

DRUGS (9)
  1. PEMETREXED [Suspect]
     Indication: NON-SMALL CELL LUNG CANCER
     Dosage: 500 MG/M2, UNK
     Route: 042
     Dates: start: 20120504
  2. DEXAMETHASONE SODIUM PHOSPHATE [Concomitant]
     Indication: PROPHYLAXIS
     Dosage: UNK
     Dates: start: 20120503, end: 20120507
  3. MYCOSTATIN [Concomitant]
     Indication: STOMATITIS
     Dosage: UNK
     Dates: start: 20120511
  4. KENACORT-A OPHTHALMIC OINTMENT [Concomitant]
     Indication: STOMATITIS
     Dosage: UNK
     Dates: start: 20120511
  5. CIXUTUMUMAB [Suspect]
     Indication: NON-SMALL CELL LUNG CANCER
     Dosage: 20 MG/KG, UNK
     Route: 042
     Dates: start: 20120504
  6. VITAMIN B-12 [Concomitant]
     Indication: PROPHYLAXIS
     Dosage: UNK
     Dates: start: 20120307
  7. CISPLATIN [Suspect]
     Indication: NON-SMALL CELL LUNG CANCER
     Dosage: 75 MG/M2, UNK
     Route: 042
     Dates: start: 20120504
  8. FOLIC ACID [Concomitant]
     Indication: PROPHYLAXIS
     Dosage: UNK
     Dates: start: 20120307
  9. TANTUM VERDE [Concomitant]
     Indication: STOMATITIS
     Dosage: UNK
     Dates: start: 20120511

REACTIONS (2)
  - FEBRILE NEUTROPENIA [None]
  - RENAL FAILURE [None]
